FAERS Safety Report 11943219 (Version 1)
Quarter: 2016Q1

REPORT INFORMATION
  Report Type: Spontaneous
  Country: US (occurrence: US)
  Receive Date: 20160125
  Receipt Date: 20160125
  Transmission Date: 20160526
  Serious: Yes (Other)
  Sender: FDA-Public Use
  Company Number: US-BEH-2016057864

PATIENT
  Sex: Female
  Weight: 90 kg

DRUGS (23)
  1. CELLCEPT [Concomitant]
     Active Substance: MYCOPHENOLATE MOFETIL\MYCOPHENOLATE MOFETIL HYDROCHLORIDE
  2. VITAMIN D [Concomitant]
     Active Substance: CHOLECALCIFEROL
  3. IBUPROFEN. [Concomitant]
     Active Substance: IBUPROFEN
  4. BENADRYL [Concomitant]
     Active Substance: DIPHENHYDRAMINE HYDROCHLORIDE
  5. PRIVIGEN [Suspect]
     Active Substance: HUMAN IMMUNOGLOBULIN G
     Dosage: AS DIRECTED
     Route: 042
     Dates: start: 20110121
  6. TROKENDI [Concomitant]
     Active Substance: TOPIRAMATE
  7. ADDERALL [Concomitant]
     Active Substance: AMPHETAMINE ASPARTATE\AMPHETAMINE SULFATE\DEXTROAMPHETAMINE SACCHARATE\DEXTROAMPHETAMINE SULFATE
  8. SODIUM CHLORIDE. [Concomitant]
     Active Substance: SODIUM CHLORIDE
  9. ZONEGRAN [Concomitant]
     Active Substance: ZONISAMIDE
  10. MULTIVITAMIN [Concomitant]
     Active Substance: VITAMINS
  11. DIPHENHYDRAMINE. [Concomitant]
     Active Substance: DIPHENHYDRAMINE
  12. LIDOCAINE. [Concomitant]
     Active Substance: LIDOCAINE
  13. MIRALAX [Concomitant]
     Active Substance: POLYETHYLENE GLYCOL 3350
  14. PRIVIGEN [Suspect]
     Active Substance: HUMAN IMMUNOGLOBULIN G
     Indication: OPTIC NEURITIS
     Dosage: AS DIRECTED
     Route: 042
     Dates: start: 20110121
  15. HEPARIN [Concomitant]
     Active Substance: HEPARIN SODIUM
  16. MAXALT [Concomitant]
     Active Substance: RIZATRIPTAN BENZOATE
  17. FROVA [Concomitant]
     Active Substance: FROVATRIPTAN SUCCINATE
  18. SOLU-MEDROL [Concomitant]
     Active Substance: METHYLPREDNISOLONE SODIUM SUCCINATE
  19. NORMAL SALINE [Concomitant]
     Active Substance: SODIUM CHLORIDE
  20. EPIPEN [Concomitant]
     Active Substance: EPINEPHRINE
  21. ZONEGRAN [Concomitant]
     Active Substance: ZONISAMIDE
  22. OMEPRAZOLE. [Concomitant]
     Active Substance: OMEPRAZOLE
  23. ACETAMINOPHEN. [Concomitant]
     Active Substance: ACETAMINOPHEN

REACTIONS (1)
  - Oral surgery [Unknown]
